FAERS Safety Report 11807312 (Version 1)
Quarter: 2015Q4

REPORT INFORMATION
  Report Type: Spontaneous
  Country: US (occurrence: US)
  Receive Date: 20151207
  Receipt Date: 20151207
  Transmission Date: 20160305
  Serious: No
  Sender: FDA-Public Use
  Company Number: US-SHIRE-US201515812

PATIENT
  Age: 27 Year
  Sex: Male

DRUGS (1)
  1. INTUNIV [Suspect]
     Active Substance: GUANFACINE HYDROCHLORIDE
     Indication: ATTENTION DEFICIT/HYPERACTIVITY DISORDER
     Dosage: UNK, UNKNOWN
     Route: 048
     Dates: start: 2015

REACTIONS (4)
  - Abdominal pain [Unknown]
  - Drug administered to patient of inappropriate age [Unknown]
  - Urinary incontinence [Unknown]
  - Constipation [Unknown]

NARRATIVE: CASE EVENT DATE: 2015
